FAERS Safety Report 6381731-3 (Version None)
Quarter: 2009Q3

REPORT INFORMATION
  Report Type: 
  Country: None (occurrence: None)
  Receive Date: 20090930
  Receipt Date: 20090921
  Transmission Date: 20100115
  Serious: Yes (Hospitalization, Other)
  Sender: FDA-Public Use
  Company Number: PHHY2009CH41198

PATIENT
  Age: 46 Year
  Sex: Male

DRUGS (6)
  1. DICLOFENAC [Suspect]
     Dosage: 50 MG, TID
  2. LISINOPRIL [Suspect]
     Dosage: 20 MG PER DAY
  3. ACETYLSALICYLIC ACID [Concomitant]
     Dosage: 100 MG PER DAY
  4. TORSEMIDE [Concomitant]
     Dosage: 5 MG PER DAY
  5. ATENOLOL [Concomitant]
     Dosage: 100 MG PER DAY
  6. THIAZIDE DERIVATIVES [Concomitant]
     Dosage: 25 MG PER DAY

REACTIONS (11)
  - ACUTE PRERENAL FAILURE [None]
  - BLADDER CATHETERISATION [None]
  - CATHETER PLACEMENT [None]
  - CATHETER RELATED COMPLICATION [None]
  - DYSURIA [None]
  - HAEMATURIA [None]
  - NORMOCHROMIC NORMOCYTIC ANAEMIA [None]
  - PROTEINURIA [None]
  - RENAL DISORDER [None]
  - URETHRAL STENOSIS [None]
  - URINARY TRACT INFECTION [None]
